FAERS Safety Report 13797693 (Version 1)
Quarter: 2017Q3

REPORT INFORMATION
  Report Type: Spontaneous
  Country: US (occurrence: US)
  Receive Date: 20170726
  Receipt Date: 20170726
  Transmission Date: 20171127
  Serious: Yes (Life-Threatening, Other)
  Sender: FDA-Public Use
  Company Number: None

PATIENT
  Age: 29 Year
  Sex: Male
  Weight: 65.83 kg

DRUGS (6)
  1. ZUBSOLV [Suspect]
     Active Substance: BUPRENORPHINE HYDROCHLORIDE\NALOXONE HYDROCHLORIDE
     Indication: DRUG DEPENDENCE
     Dosage: ZUBSOLV 5.7/1.4 MG
     Route: 060
     Dates: start: 20170614
  2. BUSPAR 15MG [Concomitant]
  3. EXCEDRIN MIGREAINE-OTC [Concomitant]
  4. MELATONIN GUMMIES [Concomitant]
  5. LINZESS 290MCG [Concomitant]
  6. AYGESTIN(NIRETHINDRONE) 5 MG [Concomitant]

REACTIONS (4)
  - Vomiting [None]
  - Migraine [None]
  - Hypoglycaemia [None]
  - Nausea [None]

NARRATIVE: CASE EVENT DATE: 20170614
